FAERS Safety Report 4508480-8 (Version None)
Quarter: 2004Q4

REPORT INFORMATION
  Report Type: 
  Country: None (occurrence: None)
  Receive Date: 20041123
  Receipt Date: 20040302
  Transmission Date: 20050328
  Serious: No
  Sender: FDA-Public Use
  Company Number: US-GLAXOSMITHKLINE-A0500714A

PATIENT
  Sex: Female

DRUGS (3)
  1. WELLBUTRIN SR [Suspect]
     Dosage: 150MG TWICE PER DAY
     Route: 048
  2. TAMOXIFEN CITRATE [Concomitant]
  3. TOPROL-XL [Concomitant]

REACTIONS (2)
  - ANXIETY [None]
  - THINKING ABNORMAL [None]
